FAERS Safety Report 7815367-1 (Version None)
Quarter: 2011Q4

REPORT INFORMATION
  Report Type: 
  Country: None (occurrence: None)
  Receive Date: 20111014
  Receipt Date: 20111005
  Transmission Date: 20120403
  Serious: Yes (Hospitalization, Disabling, Other)
  Sender: FDA-Public Use
  Company Number: US-MERCK-1107USA03604

PATIENT
  Age: 54 Year
  Sex: Female

DRUGS (9)
  1. ASCORBIC ACID [Concomitant]
     Route: 065
  2. FOSAMAX [Suspect]
     Route: 048
     Dates: start: 19980101, end: 20080101
  3. FOSAMAX [Suspect]
     Route: 048
     Dates: start: 19980101, end: 20080101
  4. FOSAMAX [Suspect]
     Indication: OSTEOPOROSIS
     Route: 048
     Dates: start: 19980101, end: 20080101
  5. FOSAMAX [Suspect]
     Indication: OSTEOPENIA
     Route: 048
     Dates: start: 19980101, end: 20080101
  6. HORMONES (UNSPECIFIED) [Concomitant]
     Route: 065
     Dates: start: 19850101, end: 20040101
  7. OMEGA-3 MARINE TRIGLYCERIDES [Concomitant]
     Route: 065
  8. VITAMINS (UNSPECIFIED) [Concomitant]
     Route: 065
  9. VITAMIN E [Concomitant]
     Route: 065

REACTIONS (11)
  - ANXIETY [None]
  - INAPPROPRIATE SCHEDULE OF DRUG ADMINISTRATION [None]
  - ARTHROPATHY [None]
  - NEPHROLITHIASIS [None]
  - FEMUR FRACTURE [None]
  - GAIT DISTURBANCE [None]
  - LOW TURNOVER OSTEOPATHY [None]
  - BACK PAIN [None]
  - DEPRESSION [None]
  - LACERATION [None]
  - VITAMIN D DEFICIENCY [None]
